FAERS Safety Report 7525977-7 (Version None)
Quarter: 2011Q2

REPORT INFORMATION
  Report Type: 
  Country: None (occurrence: None)
  Receive Date: 20110606
  Receipt Date: 20110524
  Transmission Date: 20111010
  Serious: Yes (Hospitalization, Disabling)
  Sender: FDA-Public Use
  Company Number: CA-JNJFOC-20110511615

PATIENT
  Sex: Male
  Weight: 83 kg

DRUGS (2)
  1. ATIVAN [Concomitant]
  2. REMICADE [Suspect]
     Indication: PSORIASIS
     Route: 042
     Dates: start: 20101209, end: 20110321

REACTIONS (1)
  - CEREBROVASCULAR ACCIDENT [None]
